FAERS Safety Report 5407161-6 (Version None)
Quarter: 2007Q3

REPORT INFORMATION
  Report Type: 
  Country: None (occurrence: None)
  Receive Date: 20070803
  Receipt Date: 20070803
  Transmission Date: 20080115
  Serious: No
  Sender: FDA-Public Use
  Company Number: None

PATIENT
  Sex: Male
  Weight: 151.5014 kg

DRUGS (6)
  1. BUPROPION HCL [Suspect]
     Indication: ATTENTION DEFICIT/HYPERACTIVITY DISORDER
     Dosage: 75MG 1-2 DAILY PO
     Route: 048
     Dates: start: 20070702, end: 20070801
  2. BUPROPION HCL [Suspect]
     Indication: DEPRESSION
     Dosage: 75MG 1-2 DAILY PO
     Route: 048
     Dates: start: 20070702, end: 20070801
  3. BUPROPION HCL [Suspect]
     Indication: OBSESSIVE-COMPULSIVE DISORDER
     Dosage: 75MG 1-2 DAILY PO
     Route: 048
     Dates: start: 20070702, end: 20070801
  4. BUPROPION HCL [Suspect]
     Indication: ATTENTION DEFICIT/HYPERACTIVITY DISORDER
     Dosage: 300MG 1 DAILY PO
     Route: 048
     Dates: start: 20070505, end: 20070801
  5. BUPROPION HCL [Suspect]
     Indication: DEPRESSION
     Dosage: 300MG 1 DAILY PO
     Route: 048
     Dates: start: 20070505, end: 20070801
  6. BUPROPION HCL [Suspect]
     Indication: OBSESSIVE-COMPULSIVE DISORDER
     Dosage: 300MG 1 DAILY PO
     Route: 048
     Dates: start: 20070505, end: 20070801

REACTIONS (8)
  - CONSTIPATION [None]
  - DIARRHOEA [None]
  - DRUG EFFECT DECREASED [None]
  - GASTROINTESTINAL DISORDER [None]
  - HEADACHE [None]
  - MUSCLE SPASMS [None]
  - THERAPEUTIC RESPONSE UNEXPECTED WITH DRUG SUBSTITUTION [None]
  - VISION BLURRED [None]
